FAERS Safety Report 8464530-8 (Version None)
Quarter: 2012Q2

REPORT INFORMATION
  Report Type: 
  Country: None (occurrence: None)
  Receive Date: 20120323
  Receipt Date: 20111017
  Transmission Date: 20120825
  Serious: Yes (Other)
  Sender: FDA-Public Use
  Company Number: 163-21880-11102025

PATIENT
  Age: 62 Year
  Sex: Male

DRUGS (6)
  1. WARFARIN SODIUM [Concomitant]
  2. LOVAZA [Concomitant]
  3. REVLIMID [Suspect]
     Indication: MULTIPLE MYELOMA
     Dosage: 10 MG, 1 IN 1 D, PO
     Route: 048
     Dates: start: 20100710
  4. ALTACE (RAMIIPRIL) [Concomitant]
  5. ZOCOR [Concomitant]
  6. NEXIUM [Concomitant]

REACTIONS (1)
  - THROMBOSIS [None]
